FAERS Safety Report 26216641 (Version 1)
Quarter: 2025Q4

REPORT INFORMATION
  Report Type: Spontaneous
  Country: EU (occurrence: EU)
  Receive Date: 20251231
  Receipt Date: 20251231
  Transmission Date: 20260118
  Serious: Yes (Other)
  Sender: ACERTIS PHARMACEUTICALS
  Company Number: EU-ACERTIS PHARMACEUTICALS, LLC-2025ACR00026

PATIENT
  Age: 26 Year
  Sex: Female

DRUGS (1)
  1. PROGESTERONE [Suspect]
     Active Substance: PROGESTERONE
     Indication: Libido disorder
     Dosage: 200 DOSAGE FORM (200 AMPOULES DAILY), 1X/DAY
     Route: 058

REACTIONS (1)
  - Panniculitis [Recovered/Resolved]
